FAERS Safety Report 13550708 (Version 2)
Quarter: 2017Q2

REPORT INFORMATION
  Report Type: Spontaneous
  Country: US (occurrence: US)
  Receive Date: 20170516
  Receipt Date: 20170524
  Transmission Date: 20170830
  Serious: Yes (Life-Threatening, Other)
  Sender: FDA-Public Use
  Company Number: US-PFIZER INC-2017214078

PATIENT
  Age: 14 Year
  Sex: Male

DRUGS (2)
  1. SALINE /00075401/ [Concomitant]
     Active Substance: SODIUM CHLORIDE
     Dosage: UNK
  2. EPINEPHRINE. [Suspect]
     Active Substance: EPINEPHRINE
     Dosage: 1 MG/L, UNK (1:1000) IN EVERY 3000 ML BAG)

REACTIONS (1)
  - Pulmonary oedema [Recovered/Resolved]
